FAERS Safety Report 6662594-5 (Version None)
Quarter: 2010Q1

REPORT INFORMATION
  Report Type: 
  Country: None (occurrence: None)
  Receive Date: 20100329
  Receipt Date: 20100316
  Transmission Date: 20100710
  Serious: Yes (Hospitalization)
  Sender: FDA-Public Use
  Company Number: DSA_42824_2010

PATIENT
  Sex: Male

DRUGS (5)
  1. BUPROPION HCL [Suspect]
     Indication: DRUG USE FOR UNKNOWN INDICATION
     Dosage: (NOT THE PRESCRIBED AMOUNT ORAL)
     Route: 048
     Dates: start: 20100316, end: 20100316
  2. ETHANOL [Suspect]
     Indication: DRUG USE FOR UNKNOWN INDICATION
     Dosage: 2 BOTTLES
     Route: 048
     Dates: start: 20100316, end: 20100316
  3. DOXEPIN HYDROCHLORIDE [Suspect]
     Indication: DRUG USE FOR UNKNOWN INDICATION
     Dosage: (NOT THE PRESCRIBED AMOUNT ORAL)
     Route: 048
     Dates: start: 20100316, end: 20100316
  4. DOXYCYCLINE [Suspect]
     Indication: DRUG USE FOR UNKNOWN INDICATION
     Dosage: (NOT THE PRESCRIBED AMOUNT ORAL)
     Route: 048
     Dates: start: 20100316, end: 20100316
  5. RISPERIDONE [Suspect]
     Indication: DRUG USE FOR UNKNOWN INDICATION
     Dosage: (3600 MG 1X, NOT THE PRESCRIBED AMOUNT ORAL)
     Route: 048
     Dates: start: 20100316, end: 20100316

REACTIONS (2)
  - MULTIPLE DRUG OVERDOSE INTENTIONAL [None]
  - SUICIDE ATTEMPT [None]
